FAERS Safety Report 6823594-5 (Version None)
Quarter: 2010Q3

REPORT INFORMATION
  Report Type: 
  Country: None (occurrence: None)
  Receive Date: 20100708
  Receipt Date: 20061006
  Transmission Date: 20110219
  Serious: No
  Sender: FDA-Public Use
  Company Number: US-PFIZER INC-2006094727

PATIENT
  Sex: Female
  Weight: 65.77 kg

DRUGS (7)
  1. CHANTIX [Suspect]
     Indication: SMOKING CESSATION THERAPY
     Route: 065
     Dates: start: 20060724
  2. NORVASC [Concomitant]
     Route: 065
  3. ATACAND [Concomitant]
     Route: 065
  4. ACETYLSALICYLIC ACID [Concomitant]
     Route: 065
  5. LEXAPRO [Concomitant]
     Route: 065
  6. ACTOS [Concomitant]
     Route: 065
  7. NEXIUM [Concomitant]
     Route: 065

REACTIONS (4)
  - ASTHENIA [None]
  - HEADACHE [None]
  - MALAISE [None]
  - NAUSEA [None]
